FAERS Safety Report 20748020 (Version 2)
Quarter: 2022Q2

REPORT INFORMATION
  Report Type: Spontaneous
  Country: PT (occurrence: PT)
  Receive Date: 20220426
  Receipt Date: 20220504
  Transmission Date: 20220721
  Serious: Yes (Hospitalization)
  Sender: FDA-Public Use
  Company Number: None

PATIENT
  Age: 75 Year
  Sex: Female

DRUGS (2)
  1. SIMPONI [Suspect]
     Active Substance: GOLIMUMAB
     Indication: Rheumatoid arthritis
     Dosage: 50 MG/MES
     Route: 058
     Dates: start: 20180718, end: 20190401
  2. ACEMETACIN [Concomitant]
     Active Substance: ACEMETACIN
     Indication: Rheumatoid arthritis
     Route: 048

REACTIONS (2)
  - Abscess limb [Recovered/Resolved]
  - Abscess bacterial [Recovered/Resolved]

NARRATIVE: CASE EVENT DATE: 20190406
